FAERS Safety Report 7026894-1 (Version None)
Quarter: 2010Q4

REPORT INFORMATION
  Report Type: 
  Country: None (occurrence: None)
  Receive Date: 20101004
  Receipt Date: 20100929
  Transmission Date: 20110411
  Serious: Yes (Other)
  Sender: FDA-Public Use
  Company Number: A0883366A

PATIENT
  Age: 64 Year
  Sex: Male
  Weight: 82.3 kg

DRUGS (2)
  1. LAPATINIB [Suspect]
     Indication: INVESTIGATION
     Dosage: 1250MG PER DAY
     Route: 048
     Dates: start: 20100908, end: 20100921
  2. MORPHINE [Concomitant]

REACTIONS (2)
  - ABDOMINAL PAIN [None]
  - ELECTROCARDIOGRAM QT PROLONGED [None]
